FAERS Safety Report 9516697 (Version 2)
Quarter: 2014Q1

REPORT INFORMATION
  Report Type: Spontaneous
  Country: US (occurrence: None)
  Receive Date: 20130305
  Receipt Date: 20140306
  Transmission Date: 20141002
  Serious: Yes (Other)
  Sender: FDA-Public Use
  Company Number: 163-21880-12011817

PATIENT
  Age: 76 Year
  Sex: Male
  Weight: 107.96 kg

DRUGS (12)
  1. REVLIMID (LENALIDOMIDE) (25 MILLIGRAM,CAPSULES) [Suspect]
     Indication: PLASMA CELL MYELOMA
     Dosage: 25 MG, 14 IN 21 D, PO
     Route: 048
     Dates: start: 20110822
  2. VELCADE (BORTEZOMIB) (UNKNOWN) [Suspect]
     Indication: PLASMA CELL MYELOMA
     Dosage: 1.3 MG/M2, DAY 1, 4,8,11, IV
     Route: 042
     Dates: start: 20110815, end: 20111212
  3. DECADRON [Concomitant]
  4. ACYCLOVIR (ACICLOVIR) (ACICLOVIR) [Concomitant]
  5. ZESTRIL (LISINOPRIL) [Concomitant]
  6. QUESTRAN LIGHT (COLESTYRAMINE) [Concomitant]
  7. PRAVASTATIN SODIUM [Concomitant]
  8. GEMFIBROZIL [Concomitant]
  9. LISINOPRIL [Concomitant]
  10. ASPIRIN (ACETYLSALICYLIC ACID) [Concomitant]
  11. CIALIS (TADALAFIL) [Concomitant]
  12. DEPAKOTE ER (VALPROATE SEMISODIUM) [Concomitant]

REACTIONS (2)
  - Bone marrow failure [None]
  - Hypoaesthesia [None]
